FAERS Safety Report 6348180-5 (Version None)
Quarter: 2009Q3

REPORT INFORMATION
  Report Type: 
  Country: None (occurrence: None)
  Receive Date: 20090910
  Receipt Date: 20090827
  Transmission Date: 20100115
  Serious: Yes (Other)
  Sender: FDA-Public Use
  Company Number: CH-GENENTECH-289726

PATIENT
  Age: 70 Year
  Sex: Male

DRUGS (6)
  1. RITUXIMAB [Suspect]
     Indication: CHRONIC LYMPHOCYTIC LEUKAEMIA
     Dosage: 700 MG, UNK
     Route: 042
     Dates: start: 20080225, end: 20080910
  2. RITUXIMAB [Suspect]
     Dosage: 930 MG, UNK
     Route: 042
     Dates: start: 20080319
  3. RITUXIMAB [Suspect]
     Dosage: 450 MG, UNK
     Route: 042
     Dates: start: 20080617
  4. RITUXIMAB [Suspect]
     Dosage: 950 MG, UNK
     Route: 042
     Dates: start: 20080715
  5. PREDNISOLONE [Concomitant]
     Indication: DRUG USE FOR UNKNOWN INDICATION
     Dosage: UNK
     Dates: start: 20080225, end: 20080910
  6. BENDAMUSTINE [Concomitant]
     Indication: DRUG USE FOR UNKNOWN INDICATION
     Dosage: UNK
     Dates: start: 20080225, end: 20080910

REACTIONS (2)
  - AORTIC VALVE REPLACEMENT [None]
  - HAEMOLYSIS [None]
